FAERS Safety Report 6993248-3 (Version None)
Quarter: 2010Q3

REPORT INFORMATION
  Report Type: 
  Country: None (occurrence: None)
  Receive Date: 20100917
  Receipt Date: 20100708
  Transmission Date: 20110219
  Serious: Yes (Other)
  Sender: FDA-Public Use
  Company Number: US-ASTRAZENECA-2010SE17956

PATIENT
  Age: 41 Year
  Sex: Female
  Weight: 115.7 kg

DRUGS (7)
  1. SEROQUEL [Suspect]
     Indication: HALLUCINATION, AUDITORY
     Dosage: 100-200 MG
     Route: 048
     Dates: start: 20060119, end: 20080701
  2. SEROQUEL [Suspect]
     Indication: MANIA
     Dosage: 100-200 MG
     Route: 048
     Dates: start: 20060119, end: 20080701
  3. GEODON [Concomitant]
     Dates: start: 20000101, end: 20070801
  4. HALDOL [Concomitant]
  5. THORAZINE [Concomitant]
  6. TRAZODONE HCL [Concomitant]
  7. TRILEPTAL [Concomitant]

REACTIONS (2)
  - COMA [None]
  - TYPE 2 DIABETES MELLITUS [None]
